FAERS Safety Report 5720961-8 (Version None)
Quarter: 2008Q2

REPORT INFORMATION
  Report Type: 
  Country: None (occurrence: None)
  Receive Date: 20080425
  Receipt Date: 20080425
  Transmission Date: 20081010
  Serious: Yes (Hospitalization)
  Sender: FDA-Public Use
  Company Number: None

PATIENT
  Age: 44 Year
  Sex: Female
  Weight: 104 kg

DRUGS (1)
  1. RITUXAN [Suspect]
     Indication: CHRONIC LYMPHOCYTIC LEUKAEMIA
     Dates: start: 20080407, end: 20080407

REACTIONS (5)
  - CHEST PAIN [None]
  - CHILLS [None]
  - HOT FLUSH [None]
  - HYPOTENSION [None]
  - NAUSEA [None]
